FAERS Safety Report 4439374-4 (Version None)
Quarter: 2004Q3

REPORT INFORMATION
  Report Type: 
  Country: None (occurrence: None)
  Receive Date: 20040728
  Receipt Date: 20040310
  Transmission Date: 20050211
  Serious: No
  Sender: FDA-Public Use
  Company Number: USA040361609

PATIENT
  Age: 59 Year
  Sex: Female

DRUGS (2)
  1. STRATTERA [Suspect]
     Dosage: 40 MG/1 IN THE EVENING
     Dates: start: 20040304
  2. LIPITOR [Concomitant]

REACTIONS (2)
  - APATHY [None]
  - ASTHENIA [None]
